FAERS Safety Report 12445936 (Version 1)
Quarter: 2016Q2

REPORT INFORMATION
  Report Type: Spontaneous
  Country: US (occurrence: US)
  Receive Date: 20160608
  Receipt Date: 20160608
  Transmission Date: 20160815
  Serious: No
  Sender: FDA-Public Use
  Company Number: US-JNJFOC-20160520349

PATIENT
  Sex: Female

DRUGS (1)
  1. TYLENOL REGULAR STRENGTH [Suspect]
     Active Substance: ACETAMINOPHEN
     Indication: ANALGESIC THERAPY
     Dosage: 1-2 TABLETS AS NEEDED
     Route: 048

REACTIONS (6)
  - Product solubility abnormal [Unknown]
  - Odynophagia [Recovered/Resolved]
  - Incorrect dose administered [Recovered/Resolved]
  - Drug ineffective [Unknown]
  - Cough [Recovered/Resolved]
  - Wrong technique in product usage process [Recovered/Resolved]
